FAERS Safety Report 9348477 (Version 2)
Quarter: 2013Q2

REPORT INFORMATION
  Report Type: Report from Study
  Country: US (occurrence: US)
  Receive Date: 20130614
  Receipt Date: 20130625
  Transmission Date: 20140414
  Serious: Yes (Hospitalization)
  Sender: FDA-Public Use
  Company Number: US-ASTELLAS-2013US006223

PATIENT
  Age: 54 Year
  Sex: Female

DRUGS (14)
  1. ERLOTINIB TABLET [Suspect]
     Indication: NON-SMALL CELL LUNG CANCER
     Dosage: 150 MG, UID/QD
     Route: 048
     Dates: start: 20130211
  2. MK 2206 [Suspect]
     Indication: NON-SMALL CELL LUNG CANCER
     Dosage: 135 MG, WEEKLY
     Route: 048
     Dates: start: 20130211
  3. MK 2206 [Suspect]
     Dosage: UNK
  4. SYNTHROID [Concomitant]
     Indication: HYPOTHYROIDISM
     Dosage: 75 UG, UID/QD
     Route: 048
     Dates: start: 2003
  5. ZOMETA [Concomitant]
     Indication: BONE DISORDER
     Dosage: 4 MG, Q4W
     Route: 042
     Dates: start: 20130109
  6. ASPIRIN [Concomitant]
     Indication: THROMBOSIS PROPHYLAXIS
     Dosage: 81 MG, UID/QD
     Route: 048
     Dates: start: 201209, end: 20130301
  7. PAXIL [Concomitant]
     Indication: DEPRESSION
     Dosage: 20 MG, UID/QD
     Route: 048
     Dates: start: 20120731
  8. TYLENOL EXTRA STRENGTH [Concomitant]
     Indication: PAIN IN EXTREMITY
     Dosage: 500 MG, PRN
     Route: 048
     Dates: start: 201208
  9. ADVIL                              /00109201/ [Concomitant]
     Indication: PAIN IN EXTREMITY
     Dosage: 200 MG, PRN
     Route: 048
     Dates: start: 201208
  10. BACITRACIN [Concomitant]
     Indication: RASH
     Dosage: UNK
     Route: 061
     Dates: start: 20130218
  11. ZOFRAN                             /00955301/ [Concomitant]
     Indication: NAUSEA
     Dosage: 4 MG, PRN
     Route: 048
     Dates: start: 20130219
  12. PREVACID [Concomitant]
     Indication: NAUSEA
     Dosage: 30 MG, UID/QD
     Route: 048
     Dates: start: 20130219
  13. CHLORHEXIDINE [Concomitant]
     Indication: GINGIVAL PAIN
     Dosage: UNK
     Route: 050
     Dates: start: 20130219
  14. PERCOCET                           /00867901/ [Concomitant]
     Indication: PAIN
     Dosage: 1 DF, PRN
     Route: 048
     Dates: start: 20130422, end: 20130423

REACTIONS (5)
  - Femur fracture [Unknown]
  - Abdominal pain [Unknown]
  - Flank pain [Unknown]
  - Back pain [Unknown]
  - Pain [Unknown]
